FAERS Safety Report 9922419 (Version 2)
Quarter: 2014Q1

REPORT INFORMATION
  Report Type: Spontaneous
  Country: IT (occurrence: IT)
  Receive Date: 20140225
  Receipt Date: 20140225
  Transmission Date: 20141002
  Serious: Yes (Other)
  Sender: FDA-Public Use
  Company Number: IT-ABBVIE-14P-083-1194638-00

PATIENT
  Age: 88 Year
  Sex: Female

DRUGS (10)
  1. DEPAKINE [Suspect]
     Indication: PSYCHOTIC DISORDER
     Route: 048
     Dates: start: 20131202, end: 20131211
  2. TALOFEN [Suspect]
     Indication: PSYCHOTIC DISORDER
     Dosage: DROPS
     Route: 048
     Dates: start: 20131208, end: 20131211
  3. PARACODINA [Suspect]
     Indication: COUGH
     Dosage: DROPS
     Route: 048
     Dates: start: 20131201, end: 20131211
  4. PANTOPRAZOLE [Concomitant]
     Indication: PRODUCT USED FOR UNKNOWN INDICATION
  5. LASIX [Concomitant]
     Indication: PRODUCT USED FOR UNKNOWN INDICATION
  6. CONGESCOR [Concomitant]
     Indication: PRODUCT USED FOR UNKNOWN INDICATION
  7. RANEXA [Concomitant]
     Indication: PRODUCT USED FOR UNKNOWN INDICATION
  8. ASCRIPTIN [Concomitant]
     Indication: PRODUCT USED FOR UNKNOWN INDICATION
  9. PLAVIX [Concomitant]
     Indication: PRODUCT USED FOR UNKNOWN INDICATION
  10. SIVASTIN [Concomitant]
     Indication: PRODUCT USED FOR UNKNOWN INDICATION

REACTIONS (2)
  - Sopor [Recovering/Resolving]
  - Somnolence [Recovering/Resolving]
